FAERS Safety Report 24618354 (Version 4)
Quarter: 2025Q1

REPORT INFORMATION
  Report Type: Spontaneous
  Country: JP (occurrence: JP)
  Receive Date: 20241114
  Receipt Date: 20250106
  Transmission Date: 20250408
  Serious: Yes (Other)
  Sender: VERICEL
  Company Number: JP-VERICEL-JP-VCEL-24-000397

PATIENT
  Age: 84 Year
  Sex: Female
  Weight: 39.3 kg

DRUGS (1)
  1. BROMELAINS [Suspect]
     Active Substance: BROMELAINS
     Indication: Thermal burn
     Route: 061
     Dates: start: 20241030, end: 20241030

REACTIONS (3)
  - Administration site haemorrhage [Recovered/Resolved]
  - Hypotension [Unknown]
  - Pain [Unknown]

NARRATIVE: CASE EVENT DATE: 20241030
